FAERS Safety Report 10261464 (Version 1)
Quarter: 2014Q2

REPORT INFORMATION
  Report Type: Spontaneous
  Country: EC (occurrence: EC)
  Receive Date: 20140626
  Receipt Date: 20140626
  Transmission Date: 20141212
  Serious: Yes (Other)
  Sender: FDA-Public Use
  Company Number: EC-009507513-1406ECU010819

PATIENT
  Sex: 0

DRUGS (1)
  1. CLARITYNE-D [Suspect]
     Indication: ANTIALLERGIC THERAPY
     Dosage: UNK
     Route: 048

REACTIONS (2)
  - Laryngospasm [Unknown]
  - Respiratory distress [Unknown]
